FAERS Safety Report 21486282 (Version 4)
Quarter: 2023Q1

REPORT INFORMATION
  Report Type: Spontaneous
  Country: IN (occurrence: IN)
  Receive Date: 20221020
  Receipt Date: 20230103
  Transmission Date: 20230417
  Serious: Yes (Other)
  Sender: FDA-Public Use
  Company Number: IN-PFIZER INC-PV202200007905

PATIENT
  Age: 64 Year
  Sex: Male

DRUGS (3)
  1. LORLATINIB [Suspect]
     Active Substance: LORLATINIB
     Indication: Lung adenocarcinoma
     Dosage: 100 MG, 1X/DAY
     Route: 048
     Dates: start: 20210210
  2. METOCLOPRAMIDE HYDROCHLORIDE [Concomitant]
     Active Substance: METOCLOPRAMIDE HYDROCHLORIDE
     Dosage: 1 DF, AS NEEDED
  3. ROSUVASTATIN [Concomitant]
     Active Substance: ROSUVASTATIN
     Dosage: 20 MG, 1X/DAY

REACTIONS (17)
  - Blood pressure increased [Unknown]
  - Electrocardiogram QT prolonged [Unknown]
  - Chest pain [Unknown]
  - COVID-19 [Recovered/Resolved]
  - Oedema peripheral [Unknown]
  - Cough [Unknown]
  - Productive cough [Unknown]
  - Dysphonia [Unknown]
  - Globulin [Unknown]
  - Blood cholesterol [Unknown]
  - Blood triglycerides [Unknown]
  - High density lipoprotein [Unknown]
  - Body mass index increased [Unknown]
  - Weight increased [Unknown]
  - Heart rate decreased [Unknown]
  - Low density lipoprotein [Unknown]
  - Very low density lipoprotein [Unknown]

NARRATIVE: CASE EVENT DATE: 20210219
